FAERS Safety Report 12145464 (Version 1)
Quarter: 2016Q1

REPORT INFORMATION
  Report Type: Spontaneous
  Country: US (occurrence: None)
  Receive Date: 20160303
  Receipt Date: 20160303
  Transmission Date: 20160526
  Serious: Yes (Hospitalization)
  Sender: FDA-Public Use
  Company Number: None

PATIENT
  Age: 78 Year
  Sex: Male
  Weight: 79 kg

DRUGS (14)
  1. LORAZEPAM (ATIVAN) [Concomitant]
  2. RABEPRAZOLE (ACIPHEX) [Concomitant]
  3. MOBIC [Concomitant]
     Active Substance: MELOXICAM
  4. FERROUS FUMARATE (IRON ORAL) [Concomitant]
  5. CODEINE-GUAIFENESIN (GUAIFENESIN AC) [Concomitant]
  6. METFORMIN (GLUCOPHAGE-XR) [Concomitant]
  7. ZANAFLEX [Concomitant]
     Active Substance: TIZANIDINE HYDROCHLORIDE
  8. DOXAZOSIN (CARDURA) [Concomitant]
  9. GLUCOSE BLOOD (ACCU-CHEK AVIVA STRIPS) [Concomitant]
  10. CIALIS [Concomitant]
     Active Substance: TADALAFIL
  11. METOPROLOL (TOPROL-XL) [Concomitant]
  12. SIMVASTATIN (ZOCOR) [Concomitant]
  13. LISINOPRIL (PRINIVIL, ZESTRIL) [Concomitant]
  14. MELOXICAM 15MG [Suspect]
     Active Substance: MELOXICAM
     Indication: SCIATICA
     Route: 048
     Dates: start: 20150709, end: 20160218

REACTIONS (1)
  - Rectal haemorrhage [None]

NARRATIVE: CASE EVENT DATE: 20160218
